FAERS Safety Report 8154875-3 (Version None)
Quarter: 2012Q1

REPORT INFORMATION
  Report Type: 
  Country: None (occurrence: None)
  Receive Date: 20120221
  Receipt Date: 20120214
  Transmission Date: 20120608
  Serious: No
  Sender: FDA-Public Use
  Company Number: PHEH2012US003348

PATIENT
  Sex: Female

DRUGS (12)
  1. TRIMETHOPRIM [Concomitant]
     Dosage: UNK UKN, UNK
  2. METOPROLOL TARTRATE [Concomitant]
     Indication: HYPERTENSION
     Dosage: UNK UKN, UNK
  3. ZETIA [Concomitant]
     Dosage: UNK UKN, UNK
  4. METFORMIN HCL [Concomitant]
     Indication: DIABETES MELLITUS
     Dosage: UNK UKN, UNK
  5. CRESTOR [Concomitant]
     Dosage: UNK UKN, UNK
  6. ACTONEL [Concomitant]
     Dosage: UNK UKN, UNK
  7. ESTROPIPATE [Concomitant]
     Indication: URINARY INCONTINENCE
     Dosage: UNK UKN, UNK
  8. FLUCONAZOLE [Concomitant]
     Dosage: UNK UKN, UNK
  9. GILENYA [Suspect]
     Indication: RELAPSING-REMITTING MULTIPLE SCLEROSIS
     Dosage: 0.5 MG, QD
     Route: 048
     Dates: start: 20120124
  10. TRICOR [Concomitant]
     Dosage: UNK UKN, UNK
  11. MACROBID [Concomitant]
     Dosage: UNK UKN, UNK
  12. GABAPENTIN [Concomitant]
     Dosage: UNK UKN, UNK

REACTIONS (4)
  - OCULAR HYPERAEMIA [None]
  - VISION BLURRED [None]
  - EYE HAEMORRHAGE [None]
  - VISUAL IMPAIRMENT [None]
